FAERS Safety Report 15719770 (Version 4)
Quarter: 2019Q4

REPORT INFORMATION
  Report Type: Report from Study
  Country: None (occurrence: US)
  Receive Date: 20181213
  Receipt Date: 20191227
  Transmission Date: 20200122
  Serious: Yes (Death)
  Sender: FDA-Public Use
  Company Number: US-ABBVIE-18K-163-2518485-00

PATIENT
  Age: 61 Year
  Sex: Female

DRUGS (2)
  1. VENETOCLAX. [Suspect]
     Active Substance: VENETOCLAX
     Indication: ACUTE MYELOID LEUKAEMIA
     Route: 048
     Dates: start: 201808, end: 20180831
  2. VENETOCLAX. [Suspect]
     Active Substance: VENETOCLAX
     Route: 048
     Dates: start: 20180831

REACTIONS (2)
  - Intentional product use issue [Unknown]
  - Acute myeloid leukaemia [Fatal]

NARRATIVE: CASE EVENT DATE: 20181026
